FAERS Safety Report 10736539 (Version 2)
Quarter: 2015Q1

REPORT INFORMATION
  Report Type: Report from Study
  Country: DE (occurrence: DE)
  Receive Date: 20150126
  Receipt Date: 20150202
  Transmission Date: 20150721
  Serious: Yes (Death)
  Sender: FDA-Public Use
  Company Number: DE-PFIZER INC-2015027627

PATIENT
  Age: 88 Year
  Sex: Female
  Weight: 86 kg

DRUGS (7)
  1. SOMAVERT [Suspect]
     Active Substance: PEGVISOMANT
     Indication: ACROMEGALY
     Dosage: 10 MG, DAILY
     Dates: start: 20041020, end: 20141014
  2. OCTREOTIDE LAR [Concomitant]
     Active Substance: OCTREOTIDE
     Dosage: UNK
     Dates: start: 20041025, end: 20041209
  3. L-THYROXIN [Concomitant]
     Active Substance: LEVOTHYROXINE SODIUM
     Indication: BLOOD THYROID STIMULATING HORMONE ABNORMAL
     Dosage: UNK
     Route: 048
     Dates: start: 201405
  4. AMLODIPINE [Concomitant]
     Active Substance: AMLODIPINE BESYLATE
     Indication: HYPERTENSION
     Dosage: UNK
     Route: 048
     Dates: start: 20100419
  5. CABERGOLINE. [Concomitant]
     Active Substance: CABERGOLINE
     Dosage: UNK
     Dates: start: 20050223, end: 20090921
  6. SIMVASTATIN. [Concomitant]
     Active Substance: SIMVASTATIN
     Indication: LIPIDS ABNORMAL
     Dosage: UNK
     Route: 048
     Dates: start: 201406
  7. METOPROGAMMA [Concomitant]
     Indication: HYPERTENSION
     Dosage: UNK
     Route: 048
     Dates: start: 20130817

REACTIONS (1)
  - Death [Fatal]

NARRATIVE: CASE EVENT DATE: 20150107
